FAERS Safety Report 21095285 (Version 1)
Quarter: 2022Q3

REPORT INFORMATION
  Report Type: Spontaneous
  Country: US (occurrence: US)
  Receive Date: 20220718
  Receipt Date: 20220718
  Transmission Date: 20221027
  Serious: No
  Sender: FDA-Public Use
  Company Number: US-PFIZER INC-202200960655

PATIENT
  Age: 72 Year
  Sex: Female

DRUGS (1)
  1. GLUCOTROL [Suspect]
     Active Substance: GLIPIZIDE
     Dosage: 5 MG, 4X/DAY (5MG; 4 PILLS A DAY)
     Dates: start: 2010

REACTIONS (1)
  - Bone pain [Unknown]
